FAERS Safety Report 8083790-9 (Version None)
Quarter: 2012Q1

REPORT INFORMATION
  Report Type: 
  Country: None (occurrence: None)
  Receive Date: 20120128
  Receipt Date: 20110125
  Transmission Date: 20120608
  Serious: No
  Sender: FDA-Public Use
  Company Number: US-ABBOTT-11P-163-0701159-00

PATIENT
  Sex: Female
  Weight: 93.07 kg

DRUGS (7)
  1. LIALDA [Concomitant]
     Indication: CROHN'S DISEASE
  2. PREVACID [Concomitant]
     Indication: GASTROOESOPHAGEAL REFLUX DISEASE
  3. PREMARIN [Concomitant]
     Indication: HORMONE REPLACEMENT THERAPY
  4. HUMIRA [Suspect]
     Indication: CROHN'S DISEASE
     Dates: start: 20080601
  5. TRICOR [Suspect]
     Indication: BLOOD CHOLESTEROL INCREASED
  6. TOPROL-XL [Concomitant]
     Indication: HYPERTENSION
  7. LOMOTIL [Concomitant]
     Indication: CROHN'S DISEASE

REACTIONS (4)
  - ARTHRALGIA [None]
  - MUSCLE SPASMS [None]
  - MYALGIA [None]
  - INJECTION SITE PAIN [None]
